FAERS Safety Report 25764609 (Version 1)
Quarter: 2025Q3

REPORT INFORMATION
  Report Type: Spontaneous
  Country: US (occurrence: US)
  Receive Date: 20250905
  Receipt Date: 20250905
  Transmission Date: 20251021
  Serious: No
  Sender: DOMPE FARMACEUTICI
  Company Number: US-FARMAPROD-202501-0139

PATIENT
  Sex: Female

DRUGS (45)
  1. OXERVATE [Suspect]
     Active Substance: CENEGERMIN-BKBJ
     Indication: Neurotrophic keratopathy
     Route: 047
     Dates: start: 20240916, end: 20241111
  2. OXERVATE [Suspect]
     Active Substance: CENEGERMIN-BKBJ
  3. VTAMA [Concomitant]
     Active Substance: TAPINAROF
  4. UNSPECIFIED INGREDIENT [Concomitant]
     Active Substance: UNSPECIFIED INGREDIENT
  5. TRETINOIN [Concomitant]
     Active Substance: TRETINOIN
  6. PIMECROLIMUS [Concomitant]
     Active Substance: PIMECROLIMUS
  7. FLUTICASONE PROPIONATE [Concomitant]
     Active Substance: FLUTICASONE PROPIONATE
  8. DOXYCYCLINE [Concomitant]
     Active Substance: DOXYCYCLINE
  9. EPIPEN [Concomitant]
     Active Substance: EPINEPHRINE
  10. ERYTHROMYCIN [Concomitant]
     Active Substance: ERYTHROMYCIN
  11. AZASITE [Concomitant]
     Active Substance: AZITHROMYCIN MONOHYDRATE
  12. FAMOTIDINE [Concomitant]
     Active Substance: FAMOTIDINE
  13. AZELASTINE HYDROCHLORIDE [Concomitant]
     Active Substance: AZELASTINE HYDROCHLORIDE
  14. TRIAMCINOLONE ACETONIDE [Concomitant]
     Active Substance: TRIAMCINOLONE ACETONIDE
  15. LOTEMAX [Concomitant]
     Active Substance: LOTEPREDNOL ETABONATE
  16. RESTASIS [Concomitant]
     Active Substance: CYCLOSPORINE
  17. MUPIROCIN [Concomitant]
     Active Substance: MUPIROCIN
  18. TACROLIMUS [Concomitant]
     Active Substance: TACROLIMUS
  19. CYCLOSPORINE MODIFIED [Concomitant]
     Active Substance: CYCLOSPORINE
  20. MOMETASONE FUROATE [Concomitant]
     Active Substance: MOMETASONE FUROATE
  21. XIIDRA [Concomitant]
     Active Substance: LIFITEGRAST
  22. PATADAY ONCE DAILY RELIEF [Concomitant]
     Active Substance: OLOPATADINE HYDROCHLORIDE
     Indication: Hypersensitivity
  23. SOOLANTRA [Concomitant]
     Active Substance: IVERMECTIN
  24. CLINDAMYCIN PHOSPHATE [Concomitant]
     Active Substance: CLINDAMYCIN PHOSPHATE
  25. ALBUTEROL SULFATE [Concomitant]
     Active Substance: ALBUTEROL SULFATE
  26. EUCRISA [Concomitant]
     Active Substance: CRISABOROLE
  27. ALLEGRA ALLERGY [Concomitant]
     Active Substance: FEXOFENADINE HYDROCHLORIDE
  28. ELIDEL [Concomitant]
     Active Substance: PIMECROLIMUS
  29. RETAINE PM [Concomitant]
     Active Substance: MINERAL OIL\PETROLATUM
  30. IVIZIA [Concomitant]
     Active Substance: POVIDONE
  31. XYZAL [Concomitant]
     Active Substance: LEVOCETIRIZINE DIHYDROCHLORIDE
  32. BENADRYL ALLERGY [Concomitant]
     Active Substance: DIPHENHYDRAMINE HYDROCHLORIDE
  33. PROBIOTICS NOS [Concomitant]
     Active Substance: PROBIOTICS NOS
  34. VITAMIN C [Concomitant]
     Active Substance: ASCORBIC ACID
  35. AMOXIL [Concomitant]
     Active Substance: AMOXICILLIN
  36. VEVYE [Concomitant]
     Active Substance: CYCLOSPORINE
     Indication: Dry eye
     Dates: start: 20240606
  37. NEORAL [Concomitant]
     Active Substance: CYCLOSPORINE
  38. MOMETASONE FUROATE [Concomitant]
     Active Substance: MOMETASONE FUROATE
  39. TRIAMCINOLONE ACETONIDE [Concomitant]
     Active Substance: TRIAMCINOLONE ACETONIDE
  40. OPZELURA [Concomitant]
     Active Substance: RUXOLITINIB PHOSPHATE
  41. DUPIXENT [Concomitant]
     Active Substance: DUPILUMAB
  42. CLOBETASOL [Concomitant]
     Active Substance: CLOBETASOL
  43. FISH OIL [Concomitant]
     Active Substance: FISH OIL
  44. NASONEX [Concomitant]
     Active Substance: MOMETASONE FUROATE
  45. NEMLUVIO [Concomitant]
     Active Substance: NEMOLIZUMAB-ILTO

REACTIONS (4)
  - Tinnitus [Not Recovered/Not Resolved]
  - Ear swelling [Recovering/Resolving]
  - Staphylococcal infection [Unknown]
  - Ear inflammation [Recovering/Resolving]
